FAERS Safety Report 7771836-4 (Version None)
Quarter: 2011Q3

REPORT INFORMATION
  Report Type: 
  Country: None (occurrence: None)
  Receive Date: 20110920
  Receipt Date: 20110905
  Transmission Date: 20111222
  Serious: Yes (Hospitalization)
  Sender: FDA-Public Use
  Company Number: AUR-APL-2011-04925

PATIENT
  Age: 31 Year
  Sex: Female

DRUGS (12)
  1. PAROXETINE HCL [Concomitant]
     Indication: PRODUCT USED FOR UNKNOWN INDICATION
     Dosage: 40 MG (20 MG,2 IN 1 D)
  2. DIAZEPAM [Suspect]
     Indication: PRODUCT USED FOR UNKNOWN INDICATION
  3. MIRTAZAPINE [Suspect]
     Indication: PRODUCT USED FOR UNKNOWN INDICATION
  4. CODEINE SULFATE [Suspect]
     Indication: PRODUCT USED FOR UNKNOWN INDICATION
  5. DOMPERIDONE (DOMPERIDONE) [Suspect]
     Indication: PRODUCT USED FOR UNKNOWN INDICATION
  6. CLONAZEPAM [Suspect]
     Indication: PRODUCT USED FOR UNKNOWN INDICATION
  7. AMITRIPTYLINE HCL [Concomitant]
     Indication: PRODUCT USED FOR UNKNOWN INDICATION
  8. PHOSPHORATE (PHOSPHORIC ACID) [Suspect]
     Indication: PRODUCT USED FOR UNKNOWN INDICATION
  9. LORAZEPAM [Suspect]
     Indication: PRODUCT USED FOR UNKNOWN INDICATION
  10. QUETIAPINE FUMARATE [Suspect]
     Indication: PRODUCT USED FOR UNKNOWN INDICATION
  11. PROCYCLIDINE (PROCYCLIDINE) [Suspect]
     Indication: PRODUCT USED FOR UNKNOWN INDICATION
  12. OMEPRAZOLE [Suspect]
     Indication: PRODUCT USED FOR UNKNOWN INDICATION

REACTIONS (91)
  - PARAESTHESIA [None]
  - APHASIA [None]
  - HYPOAESTHESIA ORAL [None]
  - PREGNANCY [None]
  - NECK PAIN [None]
  - ASTHENIA [None]
  - CONFUSIONAL STATE [None]
  - BLOOD SODIUM DECREASED [None]
  - DYSKINESIA [None]
  - HEART RATE INCREASED [None]
  - GASTRIC PH DECREASED [None]
  - PAIN IN EXTREMITY [None]
  - MUSCLE SPASMS [None]
  - MALAISE [None]
  - ROAD TRAFFIC ACCIDENT [None]
  - HEADACHE [None]
  - BALANCE DISORDER [None]
  - HYPOAESTHESIA [None]
  - LIP SWELLING [None]
  - MUSCULOSKELETAL STIFFNESS [None]
  - NIGHTMARE [None]
  - FEELING JITTERY [None]
  - BACK PAIN [None]
  - ARTHRALGIA [None]
  - DELIRIUM [None]
  - PSYCHOTIC DISORDER [None]
  - DROOLING [None]
  - EYE PAIN [None]
  - NEUROLEPTIC MALIGNANT SYNDROME [None]
  - VISUAL IMPAIRMENT [None]
  - MANIA [None]
  - MATERNAL EXPOSURE DURING PREGNANCY [None]
  - HYPOTONIA [None]
  - PREMATURE LABOUR [None]
  - FEELING OF DESPAIR [None]
  - HALLUCINATION, AUDITORY [None]
  - CONVULSION [None]
  - PRURITUS [None]
  - SWELLING FACE [None]
  - FEELING ABNORMAL [None]
  - DISORIENTATION [None]
  - CYANOSIS [None]
  - INCONTINENCE [None]
  - CONTUSION [None]
  - RESTLESS LEGS SYNDROME [None]
  - SLEEP DISORDER [None]
  - MYALGIA [None]
  - HYPERHIDROSIS [None]
  - SENSORY LOSS [None]
  - OEDEMA MOUTH [None]
  - VIITH NERVE PARALYSIS [None]
  - SCRATCH [None]
  - UNEVALUABLE EVENT [None]
  - DISSOCIATION [None]
  - TREMOR [None]
  - DISTURBANCE IN ATTENTION [None]
  - RESTLESSNESS [None]
  - HYPERSOMNIA [None]
  - DEPRESSION [None]
  - DEPERSONALISATION [None]
  - PYREXIA [None]
  - PALLOR [None]
  - H1N1 INFLUENZA [None]
  - MOOD SWINGS [None]
  - INSOMNIA [None]
  - PAROSMIA [None]
  - URINARY RETENTION [None]
  - SWOLLEN TONGUE [None]
  - SCHIZOPHRENIA [None]
  - SUICIDAL IDEATION [None]
  - DYSPNOEA [None]
  - FATIGUE [None]
  - MUSCLE DISORDER [None]
  - EMOTIONAL DISORDER [None]
  - IRRITABILITY [None]
  - MENSTRUATION IRREGULAR [None]
  - VISION BLURRED [None]
  - SPEECH DISORDER [None]
  - TINNITUS [None]
  - COGWHEEL RIGIDITY [None]
  - PUPILLARY LIGHT REFLEX TESTS ABNORMAL [None]
  - SEROTONIN SYNDROME [None]
  - ANXIETY [None]
  - AGITATION [None]
  - DECREASED APPETITE [None]
  - DIZZINESS [None]
  - VOMITING [None]
  - GAIT DISTURBANCE [None]
  - MENTAL DISORDER [None]
  - INCOHERENT [None]
  - POISONING [None]
